FAERS Safety Report 12537800 (Version 2)
Quarter: 2016Q3

REPORT INFORMATION
  Report Type: Spontaneous
  Country: BE (occurrence: BE)
  Receive Date: 20160707
  Receipt Date: 20160719
  Transmission Date: 20161109
  Serious: Yes (Other)
  Sender: FDA-Public Use
  Company Number: BE-SAOL THERAPEUTICS-2016SAO00093

PATIENT
  Sex: Male

DRUGS (1)
  1. LIORESAL [Suspect]
     Active Substance: BACLOFEN
     Dosage: 1250 ?G, \DAY

REACTIONS (2)
  - Muscle spasticity [Recovered/Resolved]
  - Device infusion issue [Recovered/Resolved]
